FAERS Safety Report 5867328-X (Version None)
Quarter: 2008Q3

REPORT INFORMATION
  Report Type: 
  Country: None (occurrence: None)
  Receive Date: 20080829
  Receipt Date: 20080829
  Transmission Date: 20090109
  Serious: No
  Sender: FDA-Public Use
  Company Number: None

PATIENT
  Age: 77 Year
  Sex: Male

DRUGS (1)
  1. LEVOFLOXACIN [Suspect]
     Indication: CELLULITIS
     Dosage: 500 MG ONCE IV
     Route: 042
     Dates: start: 20080821, end: 20080821

REACTIONS (3)
  - PRURITUS [None]
  - RASH [None]
  - URTICARIA [None]
